FAERS Safety Report 23075615 (Version 1)
Quarter: 2023Q4

REPORT INFORMATION
  Report Type: Spontaneous
  Country: US (occurrence: US)
  Receive Date: 20231017
  Receipt Date: 20231017
  Transmission Date: 20240109
  Serious: Yes (Other)
  Sender: FDA-Public Use
  Company Number: US-AURINIA PHARMACEUTICALS INC.-AUR-004195

PATIENT
  Age: 19 Year
  Sex: Male

DRUGS (1)
  1. LUPKYNIS [Suspect]
     Active Substance: VOCLOSPORIN
     Indication: Lupus nephritis
     Dosage: 23.7 MILLIGRAM, BID
     Route: 048

REACTIONS (4)
  - Chest pain [Unknown]
  - Blood creatine abnormal [Unknown]
  - Blood phosphorus abnormal [Unknown]
  - Illness [Unknown]

NARRATIVE: CASE EVENT DATE: 20231001
